FAERS Safety Report 23834017 (Version 3)
Quarter: 2024Q2

REPORT INFORMATION
  Report Type: Spontaneous
  Country: US (occurrence: US)
  Receive Date: 20240509
  Receipt Date: 20240603
  Transmission Date: 20240716
  Serious: No
  Sender: FDA-Public Use
  Company Number: US-OPELLA-2024OHG015909

PATIENT
  Sex: Female

DRUGS (1)
  1. SELSUN BLUE 2-IN-1 [Suspect]
     Active Substance: SELENIUM SULFIDE
     Indication: Product used for unknown indication
     Dosage: USED IT ONE TIME?STRENGTH: 3,25 G/325 ML
     Route: 065

REACTIONS (2)
  - Drug ineffective [Unknown]
  - No adverse event [Unknown]
